FAERS Safety Report 5168075-2 (Version None)
Quarter: 2006Q4

REPORT INFORMATION
  Report Type: 
  Country: None (occurrence: None)
  Receive Date: 20061208
  Receipt Date: 20060830
  Transmission Date: 20070319
  Serious: No
  Sender: FDA-Public Use
  Company Number: US-GLAXOSMITHKLINE-A0618644A

PATIENT
  Age: 45 Year
  Sex: Male

DRUGS (4)
  1. AVANDAMET [Suspect]
     Route: 048
  2. TRICOR [Concomitant]
  3. AVAPRO [Concomitant]
  4. ASPIRIN [Concomitant]

REACTIONS (1)
  - VISION BLURRED [None]
